FAERS Safety Report 9642913 (Version 1)
Quarter: 2013Q4

REPORT INFORMATION
  Report Type: Report from Study
  Country: NL (occurrence: NL)
  Receive Date: 20131024
  Receipt Date: 20131024
  Transmission Date: 20140711
  Serious: Yes (Other)
  Sender: FDA-Public Use
  Company Number: PHHY2013NL119617

PATIENT
  Age: 57 Year
  Sex: Female

DRUGS (6)
  1. ZOMETA [Suspect]
     Indication: BREAST CANCER METASTATIC
     Dosage: 4 MG/100ML, EVERY 4 WEEKS
     Route: 042
  2. ZOMETA [Suspect]
     Dosage: 4 MG/100ML,EVERY 4 WEEKS
     Route: 042
     Dates: start: 20130829
  3. ZOMETA [Suspect]
     Dosage: 4 MG/100ML,EVERY 4 WEEKS
     Route: 042
     Dates: start: 20130923
  4. ZOMETA [Suspect]
     Dosage: 4 MG/100ML,EVERY 4 WEEKS
     Route: 042
     Dates: start: 20131022
  5. PARACETAMOL [Concomitant]
     Dosage: 500 MG, 4 TO 6 PER DAY
  6. EXEMESTANE [Concomitant]
     Dosage: 25 MG, QD

REACTIONS (2)
  - Rib fracture [Not Recovered/Not Resolved]
  - Musculoskeletal chest pain [Not Recovered/Not Resolved]
